FAERS Safety Report 9095555 (Version 2)
Quarter: 2013Q1

REPORT INFORMATION
  Report Type: Spontaneous
  Country: GB (occurrence: GB)
  Receive Date: 20130219
  Receipt Date: 20130225
  Transmission Date: 20140127
  Serious: Yes (Hospitalization)
  Sender: FDA-Public Use
  Company Number: PHHY2013GB015117

PATIENT
  Age: 73 Year
  Sex: Male

DRUGS (4)
  1. AMIODARONE [Suspect]
     Dosage: UNK UKN, UNK
     Route: 048
  2. AMIODARONE [Suspect]
     Dosage: 900 MG, OVER 24 HOURS
  3. BETA BLOCKING AGENTS [Concomitant]
  4. WARFARIN [Concomitant]

REACTIONS (11)
  - Acute hepatic failure [Recovering/Resolving]
  - Hepatorenal syndrome [Recovering/Resolving]
  - Hepatic function abnormal [Recovering/Resolving]
  - Malaise [Unknown]
  - Hyperventilation [Recovering/Resolving]
  - Metabolic acidosis [Recovering/Resolving]
  - Renal impairment [Recovering/Resolving]
  - Anuria [Recovering/Resolving]
  - Ventricular tachycardia [Unknown]
  - International normalised ratio increased [Unknown]
  - Toxicity to various agents [Unknown]
